FAERS Safety Report 10547282 (Version 1)
Quarter: 2014Q4

REPORT INFORMATION
  Report Type: Other
  Country: DE (occurrence: DE)
  Receive Date: 20141028
  Receipt Date: 20141028
  Transmission Date: 20150529
  Serious: Yes (Other)
  Sender: FDA-Public Use
  Company Number: DE-LUPIN PHARMACEUTICALS INC.-E2B_00002604

PATIENT
  Sex: Male
  Weight: 80 kg

DRUGS (10)
  1. FLUVASTATIN [Suspect]
     Active Substance: FLUVASTATIN SODIUM
     Route: 048
     Dates: start: 20140222, end: 20140303
  2. SIMVASTATIN. [Suspect]
     Active Substance: SIMVASTATIN
     Route: 048
     Dates: start: 20131023, end: 20131031
  3. FLUVASTATIN [Suspect]
     Active Substance: FLUVASTATIN SODIUM
     Indication: TYPE IIB HYPERLIPIDAEMIA
     Route: 048
     Dates: start: 20140201, end: 20140207
  4. ASPIRIN. [Concomitant]
     Active Substance: ASPIRIN
     Indication: PRODUCT USED FOR UNKNOWN INDICATION
     Route: 048
     Dates: start: 201309
  5. Q10 [Concomitant]
     Indication: PRODUCT USED FOR UNKNOWN INDICATION
     Route: 065
     Dates: start: 201404
  6. LOVASTATIN. [Suspect]
     Active Substance: LOVASTATIN
     Indication: TYPE IIB HYPERLIPIDAEMIA
     Route: 048
     Dates: start: 20140408, end: 20140423
  7. SIMVASTATIN. [Suspect]
     Active Substance: SIMVASTATIN
     Route: 048
     Dates: start: 20131009, end: 20131016
  8. ROSUVASTATIN [Suspect]
     Active Substance: ROSUVASTATIN
     Indication: TYPE IIB HYPERLIPIDAEMIA
     Route: 048
     Dates: start: 20140501, end: 20140518
  9. ATORVASTATIN [Suspect]
     Active Substance: ATORVASTATIN
     Indication: TYPE IIB HYPERLIPIDAEMIA
     Route: 048
     Dates: start: 20140103, end: 20140123
  10. SIMVASTATIN. [Suspect]
     Active Substance: SIMVASTATIN
     Indication: TYPE IIB HYPERLIPIDAEMIA
     Route: 048
     Dates: start: 20130924, end: 20130930

REACTIONS (4)
  - Tubulointerstitial nephritis [Unknown]
  - Transient ischaemic attack [Unknown]
  - Joint stiffness [Recovering/Resolving]
  - Myalgia [Recovering/Resolving]

NARRATIVE: CASE EVENT DATE: 201309
